FAERS Safety Report 20895362 (Version 1)
Quarter: 2022Q2

REPORT INFORMATION
  Report Type: Spontaneous
  Country: US (occurrence: None)
  Receive Date: 20220531
  Receipt Date: 20220531
  Transmission Date: 20220720
  Serious: No
  Sender: FDA-Public Use
  Company Number: None

PATIENT
  Sex: Female

DRUGS (1)
  1. TREMFYA [Suspect]
     Active Substance: GUSELKUMAB
     Indication: Ankylosing spondylitis
     Dosage: 100 MG EVERY 8 WEEKS  SUBCUTANEOUS?
     Route: 058
     Dates: start: 20210922

REACTIONS (1)
  - Therapy non-responder [None]
